FAERS Safety Report 4655897-7 (Version None)
Quarter: 2005Q2

REPORT INFORMATION
  Report Type: 
  Country: None (occurrence: None)
  Receive Date: 20050505
  Receipt Date: 20050419
  Transmission Date: 20051028
  Serious: Yes (Hospitalization)
  Sender: FDA-Public Use
  Company Number: JP_050406394

PATIENT
  Age: 96 Year
  Sex: Female

DRUGS (7)
  1. EVISTA [Suspect]
     Indication: OSTEOPOROSIS POSTMENOPAUSAL
     Dosage: 60 MG/1 DAY
     Dates: start: 20050312, end: 20050324
  2. CALCITONIN-SALMON [Concomitant]
  3. MECOBALAMIN [Concomitant]
  4. PLATIBIT (ALFACALCIDOL) [Concomitant]
  5. METHAPHYLLIN [Concomitant]
  6. EPEL (EPERISONE  HYDROCHLORIDE) [Concomitant]
  7. ALDIOXA [Concomitant]

REACTIONS (4)
  - AORTIC VALVE STENOSIS [None]
  - CONDITION AGGRAVATED [None]
  - LEFT VENTRICULAR FAILURE [None]
  - PNEUMONIA [None]
